FAERS Safety Report 16619712 (Version 1)
Quarter: 2019Q3

REPORT INFORMATION
  Report Type: Spontaneous
  Country: US (occurrence: US)
  Receive Date: 20190723
  Receipt Date: 20190723
  Transmission Date: 20191004
  Serious: Yes (Hospitalization, Other)
  Sender: FDA-Public Use
  Company Number: US-JNJFOC-20190717327

PATIENT
  Age: 50 Year
  Sex: Female

DRUGS (1)
  1. INVOKAMET [Suspect]
     Active Substance: CANAGLIFLOZIN\METFORMIN HYDROCHLORIDE
     Indication: PRODUCT USED FOR UNKNOWN INDICATION
     Route: 048

REACTIONS (4)
  - Osteomyelitis acute [Unknown]
  - Diabetic foot [Unknown]
  - Gangrene [Unknown]
  - Toe amputation [Unknown]

NARRATIVE: CASE EVENT DATE: 20171013
